FAERS Safety Report 17510290 (Version 1)
Quarter: 2020Q1

REPORT INFORMATION
  Report Type: Spontaneous
  Country: US (occurrence: US)
  Receive Date: 20200306
  Receipt Date: 20200306
  Transmission Date: 20200409
  Serious: No
  Sender: FDA-Public Use
  Company Number: None

PATIENT
  Age: 41 Year
  Sex: Male

DRUGS (1)
  1. ARIPIPRAZOLE TABLET [Suspect]
     Active Substance: ARIPIPRAZOLE
     Route: 048

REACTIONS (4)
  - Erythema [None]
  - Peripheral swelling [None]
  - Oxygen saturation decreased [None]
  - Drooling [None]

NARRATIVE: CASE EVENT DATE: 20200118
